FAERS Safety Report 5166422-9 (Version None)
Quarter: 2006Q4

REPORT INFORMATION
  Report Type: 
  Country: None (occurrence: None)
  Receive Date: 20061129
  Receipt Date: 20061113
  Transmission Date: 20070319
  Serious: Yes (Hospitalization)
  Sender: FDA-Public Use
  Company Number: DSA_29003_2006

PATIENT
  Age: 49 Year
  Sex: Female
  Weight: 78.0187 kg

DRUGS (3)
  1. CARDIZEM LA [Suspect]
     Indication: HYPERTENSION
     Dosage: 120 MG QAM PO
     Route: 048
     Dates: start: 20061101, end: 20061108
  2. DILTIAZEM HCL [Suspect]
     Indication: HYPERTENSION
     Dosage: 30 MG Q DAY PO
     Route: 048
     Dates: start: 20061101, end: 20061101
  3. CARDIZEM LA [Suspect]
     Indication: HYPERTENSION
     Dosage: 180 MG QAM PO
     Route: 048
     Dates: start: 20061109, end: 20061109

REACTIONS (5)
  - BLOOD PRESSURE INCREASED [None]
  - DYSPNOEA [None]
  - FEELING ABNORMAL [None]
  - HEART RATE INCREASED [None]
  - NAUSEA [None]
